FAERS Safety Report 8544921-7 (Version None)
Quarter: 2012Q3

REPORT INFORMATION
  Report Type: 
  Country: None (occurrence: None)
  Receive Date: 20120727
  Receipt Date: 20120720
  Transmission Date: 20120928
  Serious: Yes (Hospitalization)
  Sender: FDA-Public Use
  Company Number: FR-ROCHE-1091104

PATIENT
  Age: 16 Year
  Sex: Female

DRUGS (11)
  1. ACTEMRA [Suspect]
     Dates: start: 20120531
  2. ACTEMRA [Suspect]
     Indication: JUVENILE ARTHRITIS
     Route: 042
     Dates: start: 20120404, end: 20120703
  3. ACTEMRA [Suspect]
     Dates: start: 20120503
  4. PANTOPRAZOLE [Concomitant]
     Route: 048
     Dates: start: 20120107
  5. TRANQUITAL [Concomitant]
     Route: 048
     Dates: start: 20120101
  6. ACTEMRA [Suspect]
     Dates: start: 20120703
  7. SOLU-MEDROL [Concomitant]
     Route: 040
     Dates: end: 20120703
  8. METHOTREXATE [Concomitant]
     Route: 048
     Dates: start: 20120102
  9. ACETAMINOPHEN [Concomitant]
     Dosage: 2 TO 3 GM
     Route: 048
     Dates: start: 20120102
  10. FOLIC ACID [Concomitant]
     Route: 048
     Dates: start: 20120102
  11. PREDNISONE TAB [Concomitant]
     Indication: JUVENILE ARTHRITIS
     Route: 048
     Dates: start: 20120102

REACTIONS (6)
  - PRURITUS [None]
  - SWELLING FACE [None]
  - OROPHARYNGEAL DISCOMFORT [None]
  - ERYTHEMA [None]
  - FEELING HOT [None]
  - HYPERSENSITIVITY [None]
